FAERS Safety Report 13454913 (Version 3)
Quarter: 2017Q3

REPORT INFORMATION
  Report Type: Spontaneous
  Country: US (occurrence: US)
  Receive Date: 20170418
  Receipt Date: 20170718
  Transmission Date: 20171127
  Serious: No
  Sender: FDA-Public Use
  Company Number: US-PFIZER INC-2017165767

PATIENT
  Age: 74 Year
  Sex: Female

DRUGS (57)
  1. FASLODEX [Concomitant]
     Active Substance: FULVESTRANT
     Dosage: 500 MG, (EVERY 4 WEEKS FOR 12 TIMES)
     Route: 030
     Dates: end: 20170616
  2. HYDROCHLOROTHIAZIDE. [Concomitant]
     Active Substance: HYDROCHLOROTHIAZIDE
     Dosage: 25 MG, DAILY
     Route: 048
  3. ARIMIDEX [Concomitant]
     Active Substance: ANASTROZOLE
     Dosage: 1 MG, DAILY FOR 30 DAYS
     Route: 048
     Dates: start: 20090320, end: 20131009
  4. DIPHENHYDRAMINE. [Concomitant]
     Active Substance: DIPHENHYDRAMINE
     Dosage: 25 MG, DAILY (15MINS IN D5W 50 ML) FOR 1 DAY
     Route: 042
     Dates: start: 20081104, end: 20090129
  5. PROCHLORPERAZINE MALEATE. [Concomitant]
     Active Substance: PROCHLORPERAZINE MALEATE
     Dosage: 10 MG, AS NEEDED (FOUR TIMES A DAY)
     Route: 048
     Dates: start: 20170412, end: 20170519
  6. ZOMETA [Concomitant]
     Active Substance: ZOLEDRONIC ACID
     Dosage: 4 MG, UNK (Q 4 WEEKS CONTINUOUS OVER 20 MINUTES FOR 2 DOSES IN NS 100 ML)
     Route: 042
     Dates: start: 20090518, end: 20110602
  7. ALEVE [Concomitant]
     Active Substance: NAPROXEN SODIUM
     Dosage: 220 MG, DAILY
     Route: 048
  8. VITAMIN D3 [Concomitant]
     Active Substance: CHOLECALCIFEROL
     Dosage: 2000 IU, DAILY
     Route: 048
     Dates: end: 20170127
  9. NEUPOGEN [Concomitant]
     Active Substance: FILGRASTIM
     Dosage: 480 UG, DAILY (FOR 3 DAYS)
     Route: 058
     Dates: start: 20081111, end: 20090202
  10. ONDANSETRON [Concomitant]
     Active Substance: ONDANSETRON
     Dosage: 32 MG, DAILY (FOR 1 DAY IN D5W 50 ML)
     Route: 042
     Dates: start: 20081104, end: 20090129
  11. AF LORATADINE [Concomitant]
     Dosage: 10 MG, AS NEEDED (DAILY PRN)
     Route: 048
     Dates: end: 20090910
  12. CATHFLO ACTIVASE [Concomitant]
     Active Substance: ALTEPLASE
     Dosage: 2 MG, SINGLE (ONCE IN STER. WATER 2 ML)
     Route: 042
     Dates: start: 20090910, end: 20090910
  13. CLEOCIN [Concomitant]
     Active Substance: CLINDAMYCIN PHOSPHATE
     Dosage: 300 MG, 4X/DAY FOR 7 DAYS
     Route: 048
     Dates: start: 20110707
  14. FLUZONE QUADRIVALENT [Concomitant]
     Active Substance: INFLUENZA A VIRUS A/CALIFORNIA/7/2009 X-179A (H1N1) ANTIGEN (FORMALDEHYDE INACTIVATED)\INFLUENZA A VIRUS A/TEXAS/50/2012 X-223A (H3N2) ANTIGEN (FORMALDEHYDE INACTIVATED)\INFLUENZA B VIRUS B/BRISBANE/60/2008 ANTIGEN (FORMALDEHYDE INACTIVATED)\INFLUENZA B VIRUS B/MASSACHUSETTS/2/2012 ANTIGEN (FORMALDE
     Dosage: 0.5 ML, SINGLE
     Route: 030
     Dates: start: 20151027, end: 20151027
  15. INFLUENZA VIRUS VACCINE [Concomitant]
     Active Substance: INFLUENZA VIRUS VACCINE
     Dosage: 0.5 ML, DAILY (FOR 1 DAY)
     Route: 030
     Dates: start: 20131106, end: 20131106
  16. METOCLOPRAMIDE HCL [Concomitant]
     Active Substance: METOCLOPRAMIDE HYDROCHLORIDE
     Dosage: 10 MG, AS NEEDED (TID)
     Route: 048
     Dates: start: 20170309, end: 20170519
  17. ADVAIR HFA [Concomitant]
     Active Substance: FLUTICASONE PROPIONATE\SALMETEROL XINAFOATE
     Dosage: UNK UNK, 2X/DAY (1 AEROSOL POWDER, BREATH ACTIVATED)
     Route: 055
     Dates: end: 20161011
  18. HYDROCODONE/ACETAMINOPHEN [Concomitant]
     Active Substance: ACETAMINOPHEN\HYDROCODONE
     Dosage: 1 DF, AS NEEDED [HYDROCODONE BITARTRATE: 5 MG]/[PARACETAMOL: 325 MG] (Q 6 HOURS)
     Route: 048
     Dates: end: 20161011
  19. LASIX [Concomitant]
     Active Substance: FUROSEMIDE
     Dosage: 20 MG, DAILY
     Route: 048
     Dates: start: 20081210, end: 20090108
  20. OXYCODONE HYDROCHLORIDE. [Concomitant]
     Active Substance: OXYCODONE HYDROCHLORIDE
     Dosage: 5 MG, AS NEEDED (EVERY 6 HOURS)
     Route: 048
     Dates: start: 20081029
  21. RANITIDINE. [Concomitant]
     Active Substance: RANITIDINE
     Dosage: 50 MG, DAILY (OVER 15 SECONDS FOR DAY IN NS 50 ML)
     Route: 042
     Dates: start: 20081104, end: 20090129
  22. ZITHROMAX [Concomitant]
     Active Substance: AZITHROMYCIN DIHYDRATE
     Dosage: UNK, AS DIRECTED
     Route: 048
     Dates: start: 20090219
  23. CALTRATE 600+D [Concomitant]
     Dosage: 2 DF, DAILY
     Route: 048
     Dates: end: 20170127
  24. HYDROCODONE/ACETAMINOPHEN [Concomitant]
     Active Substance: ACETAMINOPHEN\HYDROCODONE
     Dosage: 1 DF, AS NEEDED (Q 4 HOURS)
     Dates: end: 20100106
  25. FASLODEX [Concomitant]
     Active Substance: FULVESTRANT
     Dosage: 500 MG, (EVERY 4 WEEKS FOR 12 TIMES)
     Route: 030
     Dates: start: 20170421
  26. CALCIUM + VITAMIN D3 [Concomitant]
     Active Substance: CALCIUM CARBONATE\CHOLECALCIFEROL
     Dosage: 1 DF, DAILY
  27. ANASTROZOLE. [Concomitant]
     Active Substance: ANASTROZOLE
     Dosage: 1 MG, DAILY FOR 30 DAYS
     Route: 048
     Dates: start: 20100819
  28. DEXAMETHASONE. [Concomitant]
     Active Substance: DEXAMETHASONE
     Dosage: 20 MG, DAILY CONTINUOUS OVER 15 MINS FOR 1 DAY IN D5W 50 ML
     Route: 042
     Dates: start: 20081104, end: 20090129
  29. DOCETAXEL. [Concomitant]
     Active Substance: DOCETAXEL
     Dosage: 75 MG/M2, DAILY (1 HR FOR 1 DAY IN NS 250 ML)
     Route: 042
     Dates: start: 20081104, end: 20090129
  30. HEPARIN LOCK FLUSH [Concomitant]
     Active Substance: HEPARIN SODIUM
     Dosage: 10 ML, SINGLE
     Route: 030
     Dates: start: 20080923, end: 20091210
  31. METHOCARBAMOL. [Concomitant]
     Active Substance: METHOCARBAMOL
     Dosage: 750 MG, UNK (TAKE AS DIRECTED)
     Route: 048
     Dates: start: 20101027, end: 20170127
  32. IRON [Concomitant]
     Active Substance: IRON
     Dosage: 1 DF, DAILY
     Route: 048
     Dates: end: 20161011
  33. VITAMIN D3 [Concomitant]
     Active Substance: CHOLECALCIFEROL
     Dosage: 2000 IU, DAILY
     Route: 048
  34. ZYRTEC [Concomitant]
     Active Substance: CETIRIZINE HYDROCHLORIDE
     Dosage: 10 MG, DAILY
     Route: 048
  35. EXEMESTANE. [Concomitant]
     Active Substance: EXEMESTANE
     Indication: BREAST CANCER STAGE IV
     Dosage: 25 MG, DAILY FOR 30 DAYS
     Route: 048
     Dates: start: 20120522
  36. LEVAQUIN [Concomitant]
     Active Substance: LEVOFLOXACIN
     Dosage: 500 MG, DAILY
     Route: 048
     Dates: start: 20081111, end: 20081217
  37. PAROXETINE HCL [Concomitant]
     Active Substance: PAROXETINE HYDROCHLORIDE
     Dosage: 20 MG, DAILY FOR 30 DAYS
     Route: 048
     Dates: start: 20110505
  38. POTASSIUM CHLORIDE. [Concomitant]
     Active Substance: POTASSIUM CHLORIDE
     Dosage: 40 MEQ, SINGLE (OVER 4 HOURS IN NSS 400 ML)
     Route: 042
     Dates: start: 20091204, end: 20091204
  39. ZOMETA [Concomitant]
     Active Substance: ZOLEDRONIC ACID
     Dosage: 4 MG, DAILY (OVER 15 MINUTES FOR 1 DAY IN NS 100 ML)
     Route: 042
     Dates: start: 20110630, end: 20110630
  40. PREDNISONE. [Concomitant]
     Active Substance: PREDNISONE
     Dosage: UNK
     Route: 048
     Dates: end: 20161011
  41. TRAZODONE HYDROCHLORIDE. [Concomitant]
     Active Substance: TRAZODONE HYDROCHLORIDE
     Dosage: 150 MG, 1X/DAY (AT BEDTIME)
     Route: 048
     Dates: end: 20080923
  42. VITAMIN D3 [Concomitant]
     Active Substance: CHOLECALCIFEROL
     Dosage: 2 (1000 UNITS) CAPSULE DAILY
     Route: 048
     Dates: end: 20170127
  43. FASLODEX [Concomitant]
     Active Substance: FULVESTRANT
     Indication: BREAST CANCER STAGE IV
     Dosage: 500 MG, DAILY (EVERY 14 DAYS FOR 3 DOSES)
     Route: 030
     Dates: start: 20130911
  44. ASPIRIN. [Concomitant]
     Active Substance: ASPIRIN
     Dosage: 81 MG, DAILY
     Route: 048
  45. POTASSIUM CHLORIDE. [Concomitant]
     Active Substance: POTASSIUM CHLORIDE
     Dosage: 20 MEQ, 3X/DAY [2 (10 MEQ) CAPSULE]
     Route: 048
  46. PROAIR HFA [Concomitant]
     Active Substance: ALBUTEROL SULFATE
     Dosage: UNK UNK, 4X/DAY, 2 [108 (90 BASE) MCG/ACT]
     Route: 055
  47. COMPAZINE [Concomitant]
     Active Substance: PROCHLORPERAZINE MALEATE
     Dosage: 5 MG, AS NEEDED (EVERY 6 HOURS)
     Route: 048
     Dates: start: 20081104
  48. LORTAB [Concomitant]
     Active Substance: ACETAMINOPHEN\HYDROCODONE BITARTRATE
     Dosage: UNK DF, UNK [HYDROCODONE BITARTRATE: 5 MG]/[PARACETAMOL: 500 MG] (TAKE AS DIRECTED)
     Route: 048
     Dates: start: 20110707, end: 20170127
  49. NORMAL SALINE [Concomitant]
     Active Substance: SODIUM CHLORIDE
     Dosage: 20 ML, DAILY (FOR 1 DAY)
     Dates: start: 20080923, end: 20091210
  50. TAMOXIFEN CITRATE. [Concomitant]
     Active Substance: TAMOXIFEN CITRATE
     Dosage: 20 MG, DAILY
     Route: 048
     Dates: start: 20150722, end: 20170519
  51. CITRACAL PLUS [Concomitant]
     Active Substance: CALCIUM\MAGNESIUM\VITAMIN D\ZINC
     Dosage: 2 DF, DAILY
     Route: 048
     Dates: end: 20170127
  52. COUMADIN [Concomitant]
     Active Substance: WARFARIN SODIUM
     Dosage: 1 MG, DAILY
     Route: 048
     Dates: end: 20090810
  53. IBRANCE [Suspect]
     Active Substance: PALBOCICLIB
     Indication: BREAST CANCER STAGE IV
     Dosage: 125 MG, CYCLIC (ONCE A DAY FOR 21 DAYS, THEN 7 DAYS OFF, EVERY 28 DAYS)
     Route: 048
     Dates: start: 20170116
  54. FASLODEX [Concomitant]
     Active Substance: FULVESTRANT
     Dosage: 500 MG, (EVERY 14 DAYS FOR 3 DOSES)
     Route: 030
     Dates: start: 20170127
  55. FASLODEX [Concomitant]
     Active Substance: FULVESTRANT
     Dosage: 500 MG, (EVERY 14 DAYS FOR 3 DOSES)
     Route: 030
     Dates: start: 20170324
  56. KAON-CL 10 [Concomitant]
     Dosage: 10 MEQ, DAILY
     Route: 048
     Dates: start: 20081203, end: 20090502
  57. LASIX [Concomitant]
     Active Substance: FUROSEMIDE
     Dosage: UNK
     Route: 048
     Dates: end: 20090108

REACTIONS (3)
  - Cough [Recovered/Resolved]
  - Vomiting [Recovered/Resolved]
  - Nausea [Recovered/Resolved]

NARRATIVE: CASE EVENT DATE: 201703
